FAERS Safety Report 4314276-2 (Version None)
Quarter: 2004Q1

REPORT INFORMATION
  Report Type: 
  Country: None (occurrence: None)
  Receive Date: 20040308
  Receipt Date: 20040227
  Transmission Date: 20041129
  Serious: Yes (Hospitalization)
  Sender: FDA-Public Use
  Company Number: 2004UW03578

PATIENT
  Age: 48 Year
  Sex: Male

DRUGS (12)
  1. NEXIUM [Suspect]
  2. CETUXIMAB [Suspect]
     Indication: PANCREATIC CARCINOMA
     Dosage: 250 MG IV
     Route: 042
     Dates: start: 20040121, end: 20040121
  3. TAXOTERE [Suspect]
     Indication: PANCREATIC CARCINOMA
     Dosage: 56 MG IV
     Route: 042
     Dates: start: 20040121, end: 20040121
  4. IRINOTECAN [Suspect]
     Indication: PANCREATIC CARCINOMA
     Dosage: 80 MG IV
     Route: 042
     Dates: start: 20040121, end: 20040121
  5. LOVENOX [Suspect]
     Dosage: 1/1 DAY
     Dates: start: 20030129, end: 20040129
  6. DEXAMETHASONE [Suspect]
     Dates: start: 20040122, end: 20040122
  7. MIRALAX [Suspect]
  8. VICODIN [Suspect]
  9. LIPRAM [Suspect]
  10. DURAGESIC [Concomitant]
  11. IMODIUM ^JANSSEN^ [Concomitant]
  12. THORAZINE [Concomitant]

REACTIONS (5)
  - DEHYDRATION [None]
  - DIARRHOEA [None]
  - HYPOTENSION [None]
  - NAUSEA [None]
  - VOMITING [None]
